FAERS Safety Report 10653058 (Version 1)
Quarter: 2014Q4

REPORT INFORMATION
  Report Type: Spontaneous
  Country: DK (occurrence: CH)
  Receive Date: 20141215
  Receipt Date: 20141215
  Transmission Date: 20150529
  Serious: Yes (Hospitalization)
  Sender: FDA-Public Use
  Company Number: CH-FRI-1000073066

PATIENT
  Age: 90 Year
  Sex: Female

DRUGS (19)
  1. ESCITALOPRAM [Suspect]
     Active Substance: ESCITALOPRAM OXALATE
     Indication: DEPRESSION
     Dosage: 15 MG
     Route: 048
  2. AMLODIPINE [Concomitant]
     Active Substance: AMLODIPINE BESYLATE
     Indication: HYPERTENSION
     Dosage: 10 MG
     Route: 048
  3. TOREM [Concomitant]
     Active Substance: TORSEMIDE
     Indication: CARDIAC FAILURE
     Dosage: 10 MG
     Route: 048
     Dates: start: 20140909
  4. CALCIMAGON D3 [Concomitant]
     Active Substance: CALCIUM\CHOLECALCIFEROL
     Indication: HYPOVITAMINOSIS
     Dosage: 2 DF
     Route: 048
     Dates: start: 20141110
  5. DEXAMETHASONE. [Concomitant]
     Active Substance: DEXAMETHASONE
     Indication: MENINGIOMA
     Dosage: 4 MG
     Route: 048
     Dates: start: 201408, end: 20141102
  6. SINTROM [Concomitant]
     Active Substance: ACENOCOUMAROL
     Indication: ATRIAL FIBRILLATION
     Route: 048
  7. DAFALGAN [Concomitant]
     Active Substance: ACETAMINOPHEN
     Indication: PAIN
     Dosage: 3000 MG
     Route: 048
  8. AUGMENTIN [Concomitant]
     Active Substance: AMOXICILLIN\CLAVULANATE POTASSIUM
     Indication: BRONCHITIS
     Dosage: 500/125 MG
     Route: 048
     Dates: start: 20141111
  9. ZOLPIDEM [Concomitant]
     Active Substance: ZOLPIDEM\ZOLPIDEM TARTRATE
     Indication: INSOMNIA
     Dosage: 5 MG
     Route: 048
     Dates: start: 20141117
  10. TEMESTA [Concomitant]
     Active Substance: LORAZEPAM
     Indication: AGITATION
     Dosage: 1  MG
     Route: 048
     Dates: start: 20141021
  11. ESCITALOPRAM [Suspect]
     Active Substance: ESCITALOPRAM OXALATE
     Dosage: 20 MG
     Route: 048
  12. NEXIUM [Concomitant]
     Active Substance: ESOMEPRAZOLE MAGNESIUM
     Indication: GASTROOESOPHAGEAL REFLUX PROPHYLAXIS
     Dosage: 20 MG
     Route: 048
     Dates: start: 20140926
  13. EUTHYROX [Concomitant]
     Active Substance: LEVOTHYROXINE SODIUM
     Indication: HYPOTHYROIDISM
     Dosage: 50 MCG
     Route: 048
  14. MEMANTINE [Suspect]
     Active Substance: MEMANTINE
     Dosage: 10 MG
     Route: 048
     Dates: start: 20141008, end: 20141118
  15. DISTRANEURIN [Concomitant]
     Active Substance: CLOMETHIAZOLE
     Indication: AGITATION
     Dosage: 300 MG
     Route: 048
     Dates: start: 20140912
  16. MEMANTINE [Suspect]
     Active Substance: MEMANTINE
     Indication: DEMENTIA ALZHEIMER^S TYPE
     Dosage: 5 MG
     Route: 048
     Dates: start: 20141001, end: 20141007
  17. LAXOBERON [Concomitant]
     Active Substance: SODIUM PICOSULFATE
     Indication: CONSTIPATION
     Dosage: 10 MG
     Route: 048
     Dates: start: 20141001
  18. QUETIAPINE [Concomitant]
     Active Substance: QUETIAPINE
     Indication: AGITATION
     Dosage: 12.5 MG
     Route: 048
     Dates: start: 20141001
  19. TRITTICO [Suspect]
     Active Substance: TRAZODONE HYDROCHLORIDE
     Indication: DEPRESSION
     Dosage: 50 MG
     Route: 048
     Dates: start: 20140916, end: 20141116

REACTIONS (1)
  - Cholestatic liver injury [Not Recovered/Not Resolved]

NARRATIVE: CASE EVENT DATE: 20141105
